FAERS Safety Report 14342140 (Version 1)
Quarter: 2018Q1

REPORT INFORMATION
  Report Type: Spontaneous
  Country: US (occurrence: US)
  Receive Date: 20180102
  Receipt Date: 20180102
  Transmission Date: 20180509
  Serious: No
  Sender: FDA-Public Use
  Company Number: US-TEVA-704774USA

PATIENT
  Age: 80 Year
  Sex: Male

DRUGS (2)
  1. MINOXIDIL. [Suspect]
     Active Substance: MINOXIDIL
     Dosage: 5 PERCENT DAILY;
     Route: 061
     Dates: start: 20160903, end: 20161003
  2. METFORMIN [Concomitant]
     Active Substance: METFORMIN HYDROCHLORIDE

REACTIONS (7)
  - Pain [Unknown]
  - Burning sensation [Recovered/Resolved]
  - Erythema [Recovering/Resolving]
  - Pruritus [Unknown]
  - Blister [Recovered/Resolved]
  - Skin exfoliation [Recovering/Resolving]
  - Tenderness [Recovering/Resolving]

NARRATIVE: CASE EVENT DATE: 20160903
